FAERS Safety Report 9437203 (Version 1)
Quarter: 2013Q3

REPORT INFORMATION
  Report Type: Spontaneous
  Country: GB (occurrence: GB)
  Receive Date: 20130802
  Receipt Date: 20130802
  Transmission Date: 20140515
  Serious: Yes (Other)
  Sender: FDA-Public Use
  Company Number: PHFR2013GB004416

PATIENT
  Sex: 0

DRUGS (1)
  1. SANDIMMUN [Suspect]
     Indication: RENAL TRANSPLANT

REACTIONS (2)
  - Pulmonary oedema [Unknown]
  - Sedation [Unknown]
